FAERS Safety Report 14967201 (Version 1)
Quarter: 2018Q2

REPORT INFORMATION
  Report Type: Report from Study
  Country: US (occurrence: US)
  Receive Date: 20180604
  Receipt Date: 20180604
  Transmission Date: 20180711
  Serious: Yes (Hospitalization)
  Sender: FDA-Public Use
  Company Number: US-CHEPLA-1950158

PATIENT
  Age: 41 Year
  Sex: Female
  Weight: 80.29 kg

DRUGS (10)
  1. ARSENIC TRIOXIDE [Suspect]
     Active Substance: ARSENIC TRIOXIDE
     Indication: ACUTE PROMYELOCYTIC LEUKAEMIA
     Route: 042
     Dates: start: 20170514
  2. OMNICEF (UNITED STATES) [Concomitant]
     Dosage: TAKE 1 CAPSULE (300 MG) BY MOUTH TWICE DAILY FOR 14 DAYS
     Route: 048
  3. VALTREX [Concomitant]
     Active Substance: VALACYCLOVIR HYDROCHLORIDE
     Dosage: TO PREVENT VIRAL INFECTION
     Route: 048
  4. PEPCID (UNITED STATES) [Concomitant]
     Dosage: TAKE 1 TABLET (20 MG) BY MOUTH EVERY 12 (TWELVE) HOURS
     Route: 048
  5. DIFLUCAN [Concomitant]
     Active Substance: FLUCONAZOLE
     Dosage: FLUCONAZOLE (DIFLUCAN) 200 MG TABLET,?TAKE 1 TABLET (200 MG) BY MOUTH DAILY., DISPENSED: 30 TABLETS.
     Route: 048
  6. SENOKOT-S [Concomitant]
     Active Substance: DOCUSATE SODIUM\SENNOSIDES
     Indication: CONSTIPATION
     Dosage: SENNA-DOCUSATE (SENOKOT-S) 8.6 MG-50 MG TABLET, TAKE 1 TABLET BY?MOUTH 2 (TWO) TIMES A DAY AS NEEDED
     Route: 048
  7. GEMTUZUMAB OZOGAMICIN [Suspect]
     Active Substance: GEMTUZUMAB OZOGAMICIN
     Indication: ACUTE PROMYELOCYTIC LEUKAEMIA
     Route: 042
     Dates: start: 20170501
  8. SODIUM CHLORIDE. [Concomitant]
     Active Substance: SODIUM CHLORIDE
     Dosage: SODIUM CHLORIDE (NS) 0.9% FLUSH SYRINGE 10 ML, INJECT 1 SYRINGE INTO EACH?LUMEN OF CENTRAL VENOUS CA
     Route: 065
  9. COMPAZINE [Concomitant]
     Active Substance: PROCHLORPERAZINE MALEATE
     Indication: NAUSEA
     Dosage: PROCHLORPERAZINE (COMPAZINE) 10 MG TABLET, TAKE 1 TABLET (10 MG) BY?MOUTH EVERY 6 (SIX) HOURS AS NEE
     Route: 048
  10. RETINOIC ACID [Suspect]
     Active Substance: TRETINOIN
     Indication: ACUTE PROMYELOCYTIC LEUKAEMIA
     Route: 048
     Dates: start: 20170512

REACTIONS (1)
  - Non-cardiac chest pain [Not Recovered/Not Resolved]

NARRATIVE: CASE EVENT DATE: 20170527
